FAERS Safety Report 23232812 (Version 1)
Quarter: 2023Q4

REPORT INFORMATION
  Report Type: Spontaneous
  Country: US (occurrence: US)
  Receive Date: 20231128
  Receipt Date: 20231128
  Transmission Date: 20240109
  Serious: No
  Sender: FDA-Public Use
  Company Number: US-AMGEN-USASP2023203215

PATIENT
  Sex: Female

DRUGS (2)
  1. AIMOVIG [Suspect]
     Active Substance: ERENUMAB-AOOE
     Indication: Migraine
     Dosage: UNK
     Route: 065
  2. AIMOVIG [Suspect]
     Active Substance: ERENUMAB-AOOE
     Dosage: 140 MILLIGRAM, QMO
     Route: 065

REACTIONS (8)
  - Device difficult to use [Unknown]
  - Renal disorder [Unknown]
  - Immune system disorder [Unknown]
  - White blood cell count decreased [Unknown]
  - Unevaluable event [Unknown]
  - Night sweats [Unknown]
  - Fatigue [Unknown]
  - Palpitations [Not Recovered/Not Resolved]
